FAERS Safety Report 23989209 (Version 1)
Quarter: 2024Q2

REPORT INFORMATION
  Report Type: Spontaneous
  Country: US (occurrence: US)
  Receive Date: 20240619
  Receipt Date: 20240619
  Transmission Date: 20240716
  Serious: Yes (Hospitalization, Other)
  Sender: FDA-Public Use
  Company Number: US-GLAXOSMITHKLINE-US2024GSK073384

PATIENT

DRUGS (1)
  1. LAMOTRIGINE [Suspect]
     Active Substance: LAMOTRIGINE
     Indication: Partial seizures
     Dosage: 250 MG, BID
     Route: 048

REACTIONS (17)
  - Toxicity to various agents [Recovering/Resolving]
  - Suicide attempt [Recovering/Resolving]
  - Abdominal pain [Recovering/Resolving]
  - Nausea [Recovering/Resolving]
  - Vomiting [Recovering/Resolving]
  - Dizziness [Recovering/Resolving]
  - Seizure [Recovering/Resolving]
  - Encephalopathy [Recovering/Resolving]
  - Agitation [Recovering/Resolving]
  - Disorientation [Recovering/Resolving]
  - Abdominal tenderness [Recovering/Resolving]
  - Nystagmus [Recovering/Resolving]
  - Ataxia [Recovering/Resolving]
  - Reflexes abnormal [Recovering/Resolving]
  - Clonus [Recovering/Resolving]
  - Extensor plantar response [Recovering/Resolving]
  - Intentional overdose [Unknown]
